FAERS Safety Report 16763526 (Version 6)
Quarter: 2019Q4

REPORT INFORMATION
  Report Type: Spontaneous
  Country: US (occurrence: US)
  Receive Date: 20190902
  Receipt Date: 20191125
  Transmission Date: 20200122
  Serious: Yes (Other)
  Sender: FDA-Public Use
  Company Number: US-PFIZER INC-2019372891

PATIENT
  Age: 71 Year
  Sex: Male
  Weight: 93 kg

DRUGS (5)
  1. CELEBREX [Suspect]
     Active Substance: CELECOXIB
     Indication: PAIN
     Dosage: 200 MG, 1X/DAY [ONE TIME IN THE MORNING]
     Route: 048
     Dates: end: 2019
  2. METHOCARBAMOL. [Concomitant]
     Active Substance: METHOCARBAMOL
     Indication: MUSCLE RELAXANT THERAPY
  3. CELEBREX [Suspect]
     Active Substance: CELECOXIB
     Indication: INFLAMMATION
     Dosage: 100 MG, UNK
  4. OXYCODONE-ACET [Concomitant]
     Active Substance: ACETAMINOPHEN\OXYCODONE HYDROCHLORIDE
     Indication: PAIN
     Dosage: UNK, 4X/DAY (10-325/ 10-325 MG BY MOUTH FOUR TIMES A DAY)
     Route: 048
  5. METHOCARBAMOL. [Concomitant]
     Active Substance: METHOCARBAMOL
     Indication: PAIN
     Dosage: 750 MG, 4X/DAY

REACTIONS (15)
  - Fall [Recovered/Resolved]
  - Limb injury [Not Recovered/Not Resolved]
  - Pain [Not Recovered/Not Resolved]
  - Neck injury [Unknown]
  - Intervertebral disc disorder [Unknown]
  - Head injury [Unknown]
  - Neck pain [Not Recovered/Not Resolved]
  - Agitation [Unknown]
  - Chest injury [Not Recovered/Not Resolved]
  - Pain in extremity [Not Recovered/Not Resolved]
  - Memory impairment [Unknown]
  - Condition aggravated [Not Recovered/Not Resolved]
  - Post concussion syndrome [Unknown]
  - Headache [Not Recovered/Not Resolved]
  - Back injury [Not Recovered/Not Resolved]

NARRATIVE: CASE EVENT DATE: 20181122
